FAERS Safety Report 9971280 (Version 1)
Quarter: 2014Q1

REPORT INFORMATION
  Report Type: Report from Study
  Country: US (occurrence: US)
  Receive Date: 20140306
  Receipt Date: 20140306
  Transmission Date: 20141002
  Serious: No
  Sender: FDA-Public Use
  Company Number: US-ABBVIE-13P-163-1149270-00

PATIENT
  Age: 64 Year
  Sex: Female

DRUGS (30)
  1. HUMIRA [Suspect]
     Indication: CROHN^S DISEASE
     Dates: start: 20130901, end: 20130901
  2. HUMIRA [Suspect]
     Dates: start: 20130915, end: 20130915
  3. HUMIRA [Suspect]
     Dates: start: 20130915, end: 20130915
  4. B-12 [Suspect]
     Indication: VITAMIN SUPPLEMENTATION
  5. METHODONE [Concomitant]
     Indication: PAIN
     Dosage: 10 MG DAILY
  6. METHODONE [Concomitant]
     Indication: PAIN
  7. METHODONE [Concomitant]
     Indication: SHORT-BOWEL SYNDROME
  8. OXYCODONE [Concomitant]
     Indication: PAIN
     Dosage: 3-4 DAILY
  9. OXYCODONE [Concomitant]
     Indication: SHORT-BOWEL SYNDROME
  10. OXYCODONE [Concomitant]
     Indication: PAIN
  11. HYDRALAZINE [Concomitant]
     Indication: HEART RATE DECREASED
  12. PAROXETINE [Concomitant]
     Indication: PRODUCT USED FOR UNKNOWN INDICATION
  13. PAXIL [Concomitant]
     Indication: ANXIETY
     Dosage: 10 MG UP TO 30 MG
  14. PAXIL [Concomitant]
     Indication: NEUROPATHY PERIPHERAL
  15. TEMAZEPAM [Concomitant]
     Indication: ANXIETY
  16. TEMAZEPAM [Concomitant]
     Indication: INSOMNIA
  17. HYDRATION SALTS [Concomitant]
     Indication: VITAMIN SUPPLEMENTATION
  18. MULTIVITAMIN [Concomitant]
     Indication: VITAMIN SUPPLEMENTATION
  19. AL ACID [Concomitant]
     Indication: VITAMIN SUPPLEMENTATION
     Dosage: 400 MG DAILY
  20. ACETYL [Concomitant]
     Indication: VITAMIN SUPPLEMENTATION
     Dosage: DAILY
  21. LYSINE [Concomitant]
     Indication: VITAMIN SUPPLEMENTATION
     Dosage: 1000 MG DAILY
  22. B-12 [Concomitant]
     Indication: VITAMIN SUPPLEMENTATION
     Dosage: 1 ML DAILY
  23. FISH OIL [Concomitant]
     Indication: VITAMIN SUPPLEMENTATION
     Dosage: 2 TBSP DAILY
  24. GLUTAMINE [Concomitant]
     Indication: VITAMIN SUPPLEMENTATION
     Dosage: 1000 MG DAILY
  25. IRON [Concomitant]
     Indication: VITAMIN SUPPLEMENTATION
     Dosage: 50 MG DAILY
  26. MAGNESIUM [Concomitant]
     Indication: VITAMIN SUPPLEMENTATION
     Dosage: 1200 MG DAILY
  27. VITAMIN A [Concomitant]
     Indication: VITAMIN SUPPLEMENTATION
     Dosage: 20000 IU DAILY
  28. VITAMIN C [Concomitant]
     Indication: VITAMIN SUPPLEMENTATION
     Dosage: 1000 MG DAILY
  29. D3 [Concomitant]
     Indication: VITAMIN SUPPLEMENTATION
     Dosage: 100,000 IU DAILY
  30. VITAMIN K [Concomitant]
     Indication: VITAMIN SUPPLEMENTATION
     Dosage: 100 MCG DAILY

REACTIONS (6)
  - Feeling abnormal [Not Recovered/Not Resolved]
  - Rhinorrhoea [Not Recovered/Not Resolved]
  - Pyrexia [Not Recovered/Not Resolved]
  - Pruritus [Not Recovered/Not Resolved]
  - Pain in jaw [Not Recovered/Not Resolved]
  - Sinusitis [Not Recovered/Not Resolved]
